FAERS Safety Report 4269907-2 (Version None)
Quarter: 2004Q1

REPORT INFORMATION
  Report Type: 
  Country: None (occurrence: None)
  Receive Date: 20040114
  Receipt Date: 20031121
  Transmission Date: 20041129
  Serious: Yes (Death, Other)
  Sender: FDA-Public Use
  Company Number: US-BRISTOL-MYERS SQUIBB COMPANY-12441325

PATIENT
  Age: 48 Year
  Sex: Female
  Weight: 73 kg

DRUGS (17)
  1. REYATAZ [Suspect]
     Indication: HIV INFECTION
     Route: 048
     Dates: start: 20030828, end: 20031024
  2. EPIVIR [Concomitant]
     Dates: start: 20030828
  3. ZIAGEN [Concomitant]
     Dates: start: 20030823
  4. NORVIR [Concomitant]
     Dates: start: 20030828
  5. ASPIRIN [Concomitant]
     Dates: start: 20030828
  6. NEURONTIN [Concomitant]
  7. BACTRIM DS [Concomitant]
  8. PREDNISONE [Concomitant]
  9. XANAX [Concomitant]
  10. BUSPAR [Concomitant]
  11. PAXIL [Concomitant]
  12. GLUCOPHAGE [Concomitant]
  13. ALBUTEROL [Concomitant]
     Route: 055
  14. SEREVENT [Concomitant]
     Route: 055
  15. SINGULAIR [Concomitant]
  16. OXYGEN [Concomitant]
  17. INSULIN [Concomitant]

REACTIONS (3)
  - DYSPNOEA [None]
  - OEDEMA PERIPHERAL [None]
  - SUDDEN DEATH [None]
